FAERS Safety Report 9910937 (Version 1)
Quarter: 2014Q1

REPORT INFORMATION
  Report Type: Spontaneous
  Country: FR (occurrence: FR)
  Receive Date: 20140219
  Receipt Date: 20140219
  Transmission Date: 20141002
  Serious: Yes (Other)
  Sender: FDA-Public Use
  Company Number: FR-ACTAVIS-2014-02616

PATIENT
  Age: 64 Year
  Sex: Female

DRUGS (1)
  1. GEMCITABINE ACTAVIS [Suspect]
     Indication: OVARIAN EPITHELIAL CANCER
     Dosage: 1000 MG/M2, DAILY
     Route: 042
     Dates: start: 20130604, end: 20131112

REACTIONS (1)
  - Pericarditis [Not Recovered/Not Resolved]
